FAERS Safety Report 6076419-2 (Version None)
Quarter: 2009Q1

REPORT INFORMATION
  Report Type: 
  Country: None (occurrence: None)
  Receive Date: 20090212
  Receipt Date: 20090212
  Transmission Date: 20090719
  Serious: Yes (Other)
  Sender: FDA-Public Use
  Company Number: None

PATIENT
  Age: 23 Year
  Sex: Female
  Weight: 67.1324 kg

DRUGS (2)
  1. ACCUTANE [Suspect]
     Indication: ACNE
     Dosage: 40 MG - 1 MON 60 MG - 1 1/2 MON
     Dates: start: 20080515
  2. ACCUTANE [Suspect]
     Indication: ACNE
     Dosage: 40 MG - 1 MON 60 MG - 1 1/2 MON
     Dates: start: 20080831

REACTIONS (6)
  - ANXIETY [None]
  - DEPRESSION [None]
  - IRRITABLE BOWEL SYNDROME [None]
  - MALAISE [None]
  - PANIC ATTACK [None]
  - SUICIDAL IDEATION [None]
